FAERS Safety Report 6248993-4 (Version None)
Quarter: 2009Q2

REPORT INFORMATION
  Report Type: 
  Country: None (occurrence: None)
  Receive Date: 20090629
  Receipt Date: 20090619
  Transmission Date: 20091009
  Serious: Yes (Other)
  Sender: FDA-Public Use
  Company Number: GB-TYCO HEALTHCARE/MALLINCKRODT-T200901247

PATIENT

DRUGS (1)
  1. CONRAY [Suspect]
     Indication: COMPUTERISED TOMOGRAM HEAD
     Dosage: UNK
     Route: 042

REACTIONS (1)
  - CONVULSION [None]
